FAERS Safety Report 15766686 (Version 1)
Quarter: 2018Q4

REPORT INFORMATION
  Report Type: Spontaneous
  Country: CA (occurrence: CA)
  Receive Date: 20181227
  Receipt Date: 20181227
  Transmission Date: 20190205
  Serious: Yes (Other)
  Sender: FDA-Public Use
  Company Number: CA-BAYER-2018-240440

PATIENT
  Sex: Female
  Weight: 122.47 kg

DRUGS (7)
  1. NAPROXEN. [Concomitant]
     Active Substance: NAPROXEN
  2. MIRENA [Suspect]
     Active Substance: LEVONORGESTREL
     Indication: CONTRACEPTION
     Dosage: 20 MCG/24HR, CONT
     Route: 015
  3. ACETAMINOPHEN. [Concomitant]
     Active Substance: ACETAMINOPHEN
  4. DEXILANT [Concomitant]
     Active Substance: DEXLANSOPRAZOLE
  5. LYRICA [Concomitant]
     Active Substance: PREGABALIN
  6. MIRENA [Suspect]
     Active Substance: LEVONORGESTREL
     Indication: CONTRACEPTION
  7. CYANOCOBALAMIN. [Concomitant]
     Active Substance: CYANOCOBALAMIN

REACTIONS (9)
  - Irritability [Unknown]
  - Weight increased [Unknown]
  - Impaired driving ability [Unknown]
  - Back pain [Unknown]
  - Gait disturbance [Unknown]
  - Dyspareunia [Unknown]
  - Pelvic pain [Unknown]
  - Uterine hypertonus [Unknown]
  - Muscle spasms [Unknown]
